FAERS Safety Report 9069508 (Version 4)
Quarter: 2013Q3

REPORT INFORMATION
  Report Type: Spontaneous
  Country: US (occurrence: US)
  Receive Date: 20130215
  Receipt Date: 20130704
  Transmission Date: 20140515
  Serious: Yes (Other)
  Sender: FDA-Public Use
  Company Number: CHPA2012US012620

PATIENT
  Age: 88 Year
  Sex: Female

DRUGS (1)
  1. VOLTAREN GEL [Suspect]
     Indication: ARTHRITIS
     Dosage: 2 G, QD
     Route: 061
     Dates: start: 20120523

REACTIONS (7)
  - Pneumonia [Recovered/Resolved]
  - Muscle spasms [Recovered/Resolved]
  - Skin exfoliation [Recovered/Resolved]
  - Off label use [Unknown]
  - Therapeutic response unexpected [Unknown]
  - Drug administered at inappropriate site [Unknown]
  - Underdose [Unknown]
